FAERS Safety Report 8439623-1 (Version None)
Quarter: 2012Q2

REPORT INFORMATION
  Report Type: 
  Country: None (occurrence: None)
  Receive Date: 20120605
  Receipt Date: 20120529
  Transmission Date: 20120825
  Serious: Yes (Hospitalization)
  Sender: FDA-Public Use
  Company Number: 2012SP029610

PATIENT
  Age: 51 Year
  Weight: 55.3388 kg

DRUGS (3)
  1. PEG-INTRON [Suspect]
     Indication: HEPATITIS C
     Dosage: UNK, SC
     Route: 058
  2. REBETOL [Suspect]
     Indication: HEPATITIS C
     Dosage: UNK, PO
     Route: 048
  3. TELAVIC (ANTIVIRALS NOS) [Suspect]
     Indication: HEPATITIS C
     Dosage: 2250 MG, QD, PO
     Route: 048
     Dates: start: 20120508

REACTIONS (2)
  - BLOOD URIC ACID INCREASED [None]
  - BLOOD CREATINE PHOSPHOKINASE INCREASED [None]
